FAERS Safety Report 12139922 (Version 3)
Quarter: 2016Q1

REPORT INFORMATION
  Report Type: Report from Study
  Country: US (occurrence: US)
  Receive Date: 20160303
  Receipt Date: 20160329
  Transmission Date: 20160526
  Serious: No
  Sender: FDA-Public Use
  Company Number: US-AMGEN-USASP2014019517

PATIENT
  Age: 54 Year
  Sex: Male
  Weight: 95.69 kg

DRUGS (4)
  1. ENBREL [Suspect]
     Active Substance: ETANERCEPT
     Indication: ARTHRITIS
  2. ENBREL [Suspect]
     Active Substance: ETANERCEPT
     Indication: POLYARTHRITIS
  3. ENBREL [Suspect]
     Active Substance: ETANERCEPT
     Indication: ERYTHEMA NODOSUM
     Dosage: 50 MG, QWK
     Route: 058
     Dates: start: 201201, end: 201408
  4. ENBREL [Suspect]
     Active Substance: ETANERCEPT
     Indication: ARTHROPATHY

REACTIONS (3)
  - Influenza [Recovered/Resolved]
  - Off label use [Unknown]
  - Injection site pain [Unknown]
